FAERS Safety Report 24783000 (Version 3)
Quarter: 2025Q2

REPORT INFORMATION
  Report Type: Spontaneous
  Country: JP (occurrence: JP)
  Receive Date: 20241227
  Receipt Date: 20250509
  Transmission Date: 20250716
  Serious: Yes (Death, Hospitalization, Other)
  Sender: BAYER HEALTHCARE PHARMACEUTICALS INC.
  Company Number: JP-BAYER-2024A141070

PATIENT
  Age: 76 Year
  Sex: Male
  Weight: 53.8 kg

DRUGS (7)
  1. XOFIGO [Suspect]
     Active Substance: RADIUM RA-223 DICHLORIDE
     Indication: Prostate cancer stage IV
     Dates: start: 20220104, end: 20220104
  2. XOFIGO [Suspect]
     Active Substance: RADIUM RA-223 DICHLORIDE
     Indication: Hormone-refractory prostate cancer
     Dates: start: 20220201, end: 20220201
  3. XOFIGO [Suspect]
     Active Substance: RADIUM RA-223 DICHLORIDE
     Indication: Metastases to bone
     Dates: start: 20220301, end: 20220301
  4. CALONAL [Suspect]
     Active Substance: ACETAMINOPHEN
     Indication: Cancer pain
     Dosage: 500 MG, BID
     Route: 048
     Dates: start: 20220107, end: 20220326
  5. DECADRON [Concomitant]
     Active Substance: DEXAMETHASONE
     Indication: Prostate cancer
     Dates: start: 20211028, end: 20220329
  6. GOSERELIN ACETATE [Concomitant]
     Active Substance: GOSERELIN ACETATE
     Dates: start: 20190227, end: 20220217
  7. DENOSUMAB [Concomitant]
     Active Substance: DENOSUMAB
     Dates: start: 20211125

REACTIONS (23)
  - Prostate cancer [Fatal]
  - Pancytopenia [Fatal]
  - Thalamus haemorrhage [Fatal]
  - Dehydration [None]
  - Nausea [None]
  - Gastritis erosive [None]
  - Erosive duodenitis [None]
  - Hemiplegia [None]
  - Myelosuppression [None]
  - Metastases to bone [Not Recovered/Not Resolved]
  - Haematochezia [None]
  - Cerebral infarction [Not Recovered/Not Resolved]
  - Cerebral ischaemia [Not Recovered/Not Resolved]
  - Brain oedema [Not Recovered/Not Resolved]
  - Anorectal polyp [None]
  - Haemorrhagic diathesis [None]
  - Gastric polyps [None]
  - Hiatus hernia [None]
  - Gastrooesophageal reflux disease [None]
  - Anaemia [None]
  - Haemoglobin decreased [None]
  - White blood cell count decreased [None]
  - Platelet count decreased [None]

NARRATIVE: CASE EVENT DATE: 20220207
